FAERS Safety Report 16458268 (Version 1)
Quarter: 2019Q2

REPORT INFORMATION
  Report Type: Spontaneous
  Country: US (occurrence: US)
  Receive Date: 20190620
  Receipt Date: 20190620
  Transmission Date: 20190711
  Serious: Yes (Other)
  Sender: FDA-Public Use
  Company Number: US-TEVA-2019-US-1063007

PATIENT
  Sex: Female
  Weight: 80 kg

DRUGS (1)
  1. PROVIGIL [Suspect]
     Active Substance: MODAFINIL
     Indication: DEPRESSION
     Route: 065
     Dates: start: 201812

REACTIONS (3)
  - Depression [Unknown]
  - Wrong technique in product usage process [Unknown]
  - Feeling jittery [Unknown]
